FAERS Safety Report 21086764 (Version 4)
Quarter: 2023Q1

REPORT INFORMATION
  Report Type: Spontaneous
  Country: PT (occurrence: PT)
  Receive Date: 20220715
  Receipt Date: 20230105
  Transmission Date: 20230417
  Serious: Yes (Other)
  Sender: FDA-Public Use
  Company Number: None

PATIENT
  Age: 75 Year
  Sex: Male
  Weight: 75 kg

DRUGS (6)
  1. SKYRIZI [Suspect]
     Active Substance: RISANKIZUMAB-RZAA
     Indication: Psoriasis
     Dosage: 150MG WEEK 0; 150MG WEEK 4 AND THEN 150MG 12/12WKS
     Route: 058
     Dates: start: 20220215, end: 20220315
  2. CLOROTALIDONA [Concomitant]
     Indication: Product used for unknown indication
     Dosage: 1 TABLET AT BREAKFAST
  3. ROSUVASTATIN [Concomitant]
     Active Substance: ROSUVASTATIN
     Indication: Product used for unknown indication
     Dosage: 1 AT DINNER
  4. TANSULOSINA [Concomitant]
     Indication: Product used for unknown indication
     Dosage: 1 AT DINNER
  5. LOSARTAN [Concomitant]
     Active Substance: LOSARTAN
     Indication: Product used for unknown indication
     Dosage: HALF TABLET AT BREAKFAST
  6. LOSARTAN [Concomitant]
     Active Substance: LOSARTAN
     Indication: Product used for unknown indication
     Dosage: HALF TABLET AT BREAKFAST

REACTIONS (6)
  - Ataxia [Not Recovered/Not Resolved]
  - Amnesia [Recovering/Resolving]
  - Dizziness [Not Recovered/Not Resolved]
  - Confusional state [Recovering/Resolving]
  - Asthenia [Not Recovered/Not Resolved]
  - Fatigue [Not Recovered/Not Resolved]

NARRATIVE: CASE EVENT DATE: 20220315
